FAERS Safety Report 13408914 (Version 2)
Quarter: 2017Q2

REPORT INFORMATION
  Report Type: Spontaneous
  Country: US (occurrence: US)
  Receive Date: 20170406
  Receipt Date: 20170419
  Transmission Date: 20170830
  Serious: Yes (Other)
  Sender: FDA-Public Use
  Company Number: US-JNJFOC-20170109583

PATIENT
  Age: 10 Year
  Sex: Male

DRUGS (39)
  1. RISPERDAL [Suspect]
     Active Substance: RISPERIDONE
     Indication: ANGER
     Route: 048
     Dates: start: 20060724
  2. RISPERDAL [Suspect]
     Active Substance: RISPERIDONE
     Indication: DISTURBANCE IN ATTENTION
     Route: 048
     Dates: start: 20070130, end: 20070731
  3. RISPERIDONE. [Suspect]
     Active Substance: RISPERIDONE
     Indication: DISTURBANCE IN ATTENTION
     Route: 065
     Dates: start: 20111031, end: 20120404
  4. RISPERDAL [Suspect]
     Active Substance: RISPERIDONE
     Indication: ANGER
     Route: 048
     Dates: start: 20070130, end: 20070731
  5. RISPERDAL [Suspect]
     Active Substance: RISPERIDONE
     Indication: DISTURBANCE IN ATTENTION
     Route: 048
     Dates: end: 20140328
  6. RISPERDAL [Suspect]
     Active Substance: RISPERIDONE
     Indication: RELAXATION THERAPY
     Route: 048
     Dates: start: 20070130, end: 20070731
  7. RISPERDAL [Suspect]
     Active Substance: RISPERIDONE
     Indication: RELAXATION THERAPY
     Route: 048
     Dates: start: 20070922, end: 20080704
  8. RISPERDAL [Suspect]
     Active Substance: RISPERIDONE
     Indication: RELAXATION THERAPY
     Route: 048
     Dates: end: 20140328
  9. RISPERDAL [Suspect]
     Active Substance: RISPERIDONE
     Indication: DISTURBANCE IN ATTENTION
     Route: 048
     Dates: start: 20070922, end: 20080704
  10. RISPERDAL [Suspect]
     Active Substance: RISPERIDONE
     Indication: DISTURBANCE IN ATTENTION
     Route: 048
     Dates: end: 20140328
  11. RISPERIDONE. [Suspect]
     Active Substance: RISPERIDONE
     Indication: DISTURBANCE IN ATTENTION
     Route: 065
  12. RISPERIDONE. [Suspect]
     Active Substance: RISPERIDONE
     Indication: RELAXATION THERAPY
     Route: 065
  13. RISPERDAL [Suspect]
     Active Substance: RISPERIDONE
     Indication: ANGER
     Route: 048
     Dates: end: 20140328
  14. RISPERDAL [Suspect]
     Active Substance: RISPERIDONE
     Indication: RELAXATION THERAPY
     Route: 048
  15. RISPERDAL [Suspect]
     Active Substance: RISPERIDONE
     Indication: RELAXATION THERAPY
     Route: 048
     Dates: start: 20060724
  16. RISPERDAL [Suspect]
     Active Substance: RISPERIDONE
     Indication: DISTURBANCE IN ATTENTION
     Route: 048
     Dates: start: 20060724
  17. RISPERDAL [Suspect]
     Active Substance: RISPERIDONE
     Indication: DISTURBANCE IN ATTENTION
     Route: 048
  18. RISPERDAL [Suspect]
     Active Substance: RISPERIDONE
     Indication: RELAXATION THERAPY
     Route: 048
     Dates: start: 20130912, end: 20131029
  19. RISPERDAL [Suspect]
     Active Substance: RISPERIDONE
     Indication: DISTURBANCE IN ATTENTION
     Route: 048
  20. RISPERIDONE. [Suspect]
     Active Substance: RISPERIDONE
     Indication: DISTURBANCE IN ATTENTION
     Route: 065
     Dates: start: 20080801, end: 20110926
  21. RISPERIDONE. [Suspect]
     Active Substance: RISPERIDONE
     Indication: RELAXATION THERAPY
     Route: 065
     Dates: start: 20120622, end: 20121025
  22. RISPERIDONE. [Suspect]
     Active Substance: RISPERIDONE
     Indication: DISTURBANCE IN ATTENTION
     Route: 065
     Dates: start: 20120622, end: 20121025
  23. RISPERIDONE. [Suspect]
     Active Substance: RISPERIDONE
     Indication: DISTURBANCE IN ATTENTION
     Route: 065
     Dates: start: 20121210, end: 20140328
  24. RISPERIDONE. [Suspect]
     Active Substance: RISPERIDONE
     Indication: DISTURBANCE IN ATTENTION
     Route: 065
     Dates: start: 20080801, end: 20110926
  25. RISPERDAL [Suspect]
     Active Substance: RISPERIDONE
     Indication: DISTURBANCE IN ATTENTION
     Route: 048
     Dates: start: 20060724
  26. RISPERDAL [Suspect]
     Active Substance: RISPERIDONE
     Indication: DISTURBANCE IN ATTENTION
     Route: 048
     Dates: start: 20070922, end: 20080704
  27. RISPERDAL [Suspect]
     Active Substance: RISPERIDONE
     Indication: DISTURBANCE IN ATTENTION
     Route: 048
     Dates: start: 20070130, end: 20070731
  28. RISPERDAL [Suspect]
     Active Substance: RISPERIDONE
     Indication: ANGER
     Route: 048
     Dates: start: 20070922, end: 20080704
  29. RISPERDAL [Suspect]
     Active Substance: RISPERIDONE
     Indication: ANGER
     Route: 048
     Dates: start: 20130912, end: 20131029
  30. RISPERDAL [Suspect]
     Active Substance: RISPERIDONE
     Indication: ANGER
     Route: 048
  31. RISPERIDONE. [Suspect]
     Active Substance: RISPERIDONE
     Indication: DISTURBANCE IN ATTENTION
     Route: 065
     Dates: start: 20121210, end: 20140328
  32. RISPERIDONE. [Suspect]
     Active Substance: RISPERIDONE
     Indication: RELAXATION THERAPY
     Route: 065
     Dates: start: 20080801, end: 20110926
  33. RISPERIDONE. [Suspect]
     Active Substance: RISPERIDONE
     Indication: DISTURBANCE IN ATTENTION
     Route: 065
     Dates: start: 20111031, end: 20120404
  34. RISPERDAL [Suspect]
     Active Substance: RISPERIDONE
     Indication: DISTURBANCE IN ATTENTION
     Route: 048
     Dates: start: 20130912, end: 20131029
  35. RISPERIDONE. [Suspect]
     Active Substance: RISPERIDONE
     Indication: DISTURBANCE IN ATTENTION
     Route: 065
     Dates: start: 20120622, end: 20121025
  36. RISPERIDONE. [Suspect]
     Active Substance: RISPERIDONE
     Indication: RELAXATION THERAPY
     Route: 065
     Dates: start: 20121210, end: 20140328
  37. RISPERIDONE. [Suspect]
     Active Substance: RISPERIDONE
     Indication: RELAXATION THERAPY
     Route: 065
     Dates: start: 20111031, end: 20120404
  38. RISPERDAL [Suspect]
     Active Substance: RISPERIDONE
     Indication: DISTURBANCE IN ATTENTION
     Route: 048
     Dates: start: 20130912, end: 20131029
  39. RISPERIDONE. [Suspect]
     Active Substance: RISPERIDONE
     Indication: DISTURBANCE IN ATTENTION
     Route: 065

REACTIONS (7)
  - Off label use [Unknown]
  - Product use in unapproved indication [Unknown]
  - Blood prolactin increased [Unknown]
  - Emotional distress [Unknown]
  - Obesity [Unknown]
  - Gynaecomastia [Unknown]
  - Mental disorder [Unknown]

NARRATIVE: CASE EVENT DATE: 2006
